FAERS Safety Report 7034917-9 (Version None)
Quarter: 2010Q4

REPORT INFORMATION
  Report Type: 
  Country: None (occurrence: None)
  Receive Date: 20101008
  Receipt Date: 20100928
  Transmission Date: 20110411
  Serious: No
  Sender: FDA-Public Use
  Company Number: US-PFIZER INC-2010123493

PATIENT
  Sex: Female
  Weight: 90 kg

DRUGS (4)
  1. TOVIAZ [Suspect]
     Indication: URINARY INCONTINENCE
     Dosage: 4 MG, DAILY
     Route: 048
     Dates: start: 20100801
  2. CELEBREX [Concomitant]
     Indication: ARTHRITIS
     Dosage: 200 MG, DAILY
     Route: 048
  3. NEURONTIN [Concomitant]
     Indication: BACK PAIN
     Dosage: 200 MG, 4X/DAY
     Route: 048
  4. RESTORIL [Concomitant]
     Indication: SLEEP DISORDER
     Dosage: 30 MG, DAILY
     Route: 048

REACTIONS (3)
  - DRY MOUTH [None]
  - DRY SKIN [None]
  - DRY THROAT [None]
